FAERS Safety Report 6111626-1 (Version None)
Quarter: 2009Q1

REPORT INFORMATION
  Report Type: 
  Country: None (occurrence: None)
  Receive Date: 20090309
  Receipt Date: 20090224
  Transmission Date: 20090719
  Serious: Yes (Other)
  Sender: FDA-Public Use
  Company Number: 1000005043

PATIENT
  Age: 80 Year
  Sex: Female

DRUGS (2)
  1. MEMANTINE HCL [Suspect]
     Dosage: ORAL
     Route: 048
  2. EXELON [Concomitant]

REACTIONS (1)
  - PSYCHOTIC DISORDER [None]
